FAERS Safety Report 8454268-5 (Version None)
Quarter: 2012Q2

REPORT INFORMATION
  Report Type: 
  Country: None (occurrence: None)
  Receive Date: 20120620
  Receipt Date: 20120611
  Transmission Date: 20120825
  Serious: Yes (Death)
  Sender: FDA-Public Use
  Company Number: JP-ALLERGAN-1206710US

PATIENT
  Age: 74 Year
  Sex: Male

DRUGS (11)
  1. CEPHADOL [Concomitant]
     Indication: DIZZINESS
     Dosage: 25 MG, TID
     Dates: start: 20090101
  2. BOTOX [Suspect]
     Dosage: 220 UNITS UPPER LIMB AND 130UNITS LOWER LIMB, SINGLE
     Route: 030
     Dates: start: 20110928, end: 20110928
  3. ASPIRIN [Concomitant]
     Indication: PROPHYLAXIS
     Dosage: 100 MG, QD
     Route: 048
     Dates: start: 20090101
  4. FAMOTIDINE [Concomitant]
     Indication: PRODUCT USED FOR UNKNOWN INDICATION
     Dosage: 20 MG, QD
     Route: 048
     Dates: start: 20090101
  5. UBRETID [Concomitant]
     Indication: DYSURIA
     Dosage: 5 MG, BID
     Route: 048
     Dates: start: 20090101
  6. APHTASOLON [Concomitant]
     Indication: PRODUCT USED FOR UNKNOWN INDICATION
     Dosage: UNK
     Dates: start: 20090101
  7. BOTOX [Suspect]
     Indication: MUSCLE SPASMS
     Dosage: 340 UNITS IN UPPERLIMB AND 110UNITS IN LOWER LIMB
     Route: 030
     Dates: start: 20120204, end: 20120204
  8. PLETAL [Concomitant]
     Indication: PROPHYLAXIS
     Dosage: 100 MG, BID
     Route: 048
     Dates: start: 20090101
  9. MERISLON [Concomitant]
     Indication: DIZZINESS
     Dosage: 6 MG, TID
     Route: 048
     Dates: start: 20090101
  10. TAMSULOSIN HCL [Concomitant]
     Indication: DYSURIA
     Dosage: 0.2 MG, QD
     Route: 048
     Dates: start: 20090101
  11. CEROCRAL [Concomitant]
     Indication: DIZZINESS
     Dosage: 10 MG, TID
     Route: 048
     Dates: start: 20090101

REACTIONS (3)
  - MUSCLE SPASMS [None]
  - DEATH [None]
  - CONDITION AGGRAVATED [None]
